FAERS Safety Report 6695783-4 (Version None)
Quarter: 2010Q2

REPORT INFORMATION
  Report Type: 
  Country: None (occurrence: None)
  Receive Date: 20100426
  Receipt Date: 20100421
  Transmission Date: 20101027
  Serious: Yes (Hospitalization, Other)
  Sender: FDA-Public Use
  Company Number: US-BAYER-201013226NA

PATIENT
  Sex: Female

DRUGS (2)
  1. BETASERON [Suspect]
     Indication: RELAPSING-REMITTING MULTIPLE SCLEROSIS
     Route: 058
     Dates: start: 19930101, end: 20030101
  2. ANTIBIOTICS [Concomitant]
     Indication: INFECTION SUSCEPTIBILITY INCREASED
     Dosage: PROPHYLACTIC
     Route: 048

REACTIONS (5)
  - CELLULITIS [None]
  - DEVICE RELATED INFECTION [None]
  - DRUG SPECIFIC ANTIBODY PRESENT [None]
  - FALL [None]
  - KNEE ARTHROPLASTY [None]
